FAERS Safety Report 15839355 (Version 1)
Quarter: 2019Q1

REPORT INFORMATION
  Report Type: Report from Study
  Country: JP (occurrence: JP)
  Receive Date: 20190117
  Receipt Date: 20190117
  Transmission Date: 20190417
  Serious: Yes (Hospitalization, Other)
  Sender: FDA-Public Use
  Company Number: JP-BRISTOL-MYERS SQUIBB COMPANY-BMS-2018-115563

PATIENT
  Age: 80 Year
  Sex: Male
  Weight: 48 kg

DRUGS (12)
  1. POLAPREZINC [Concomitant]
     Active Substance: POLAPREZINC
     Indication: DECREASED APPETITE
     Route: 065
  2. ABRAXANE [Concomitant]
     Active Substance: PACLITAXEL
     Indication: GASTRIC CANCER
     Dosage: 100 MG/M2/DAY(DAY1,8,15)
     Route: 042
     Dates: start: 20181016
  3. POLARAMINE [Concomitant]
     Active Substance: DEXCHLORPHENIRAMINE MALEATE
     Indication: ALLERGY PROPHYLAXIS
     Dosage: 5 MG, EVERYDAY
     Route: 041
     Dates: start: 20181009
  4. S-1TAIHO OD [Concomitant]
     Indication: GASTRIC CANCER
     Dosage: 40 MG, Q12H
     Route: 048
     Dates: start: 20180216, end: 20180914
  5. OXALIPLATIN. [Concomitant]
     Active Substance: OXALIPLATIN
     Indication: GASTRIC CANCER
     Dosage: 130 MG, Q3WK
     Route: 065
     Dates: start: 20180216, end: 20180831
  6. DEXAMETHASONE. [Concomitant]
     Active Substance: DEXAMETHASONE
     Indication: ALLERGY PROPHYLAXIS
     Dosage: 6.6 MG, EVERYDAY
     Route: 041
     Dates: start: 20181009
  7. DEXAMETHASONE. [Concomitant]
     Active Substance: DEXAMETHASONE
     Indication: PROPHYLAXIS OF NAUSEA AND VOMITING
     Route: 065
  8. POLAPREZINC [Concomitant]
     Active Substance: POLAPREZINC
     Indication: DYSGEUSIA
     Dosage: 75 MG, Q12H
     Route: 048
     Dates: start: 20180803
  9. NIVOLUMAB [Suspect]
     Active Substance: NIVOLUMAB
     Indication: GASTRIC CANCER
     Dosage: 360 MG, Q3WK
     Route: 041
     Dates: start: 20180216, end: 20180907
  10. MAGNESIUM OXIDE. [Concomitant]
     Active Substance: MAGNESIUM OXIDE
     Indication: CONSTIPATION
     Dosage: 330 MG, Q8H
     Route: 048
     Dates: start: 20180130
  11. RAMUCIRUMAB [Concomitant]
     Active Substance: RAMUCIRUMAB
     Indication: GASTRIC CANCER
     Dosage: 8 MG/KG/DAY(DAY1,15)
     Route: 042
     Dates: start: 20181016
  12. POLARAMINE [Concomitant]
     Active Substance: DEXCHLORPHENIRAMINE MALEATE
     Indication: PROPHYLAXIS OF NAUSEA AND VOMITING
     Route: 065

REACTIONS (1)
  - Fulminant type 1 diabetes mellitus [Recovering/Resolving]

NARRATIVE: CASE EVENT DATE: 20181204
